FAERS Safety Report 4598439-7 (Version None)
Quarter: 2005Q1

REPORT INFORMATION
  Report Type: 
  Country: None (occurrence: None)
  Receive Date: 20050304
  Receipt Date: 20050222
  Transmission Date: 20050727
  Serious: Yes (Hospitalization)
  Sender: FDA-Public Use
  Company Number: US-JNJFOC-20050205916

PATIENT
  Sex: Male
  Weight: 81.65 kg

DRUGS (8)
  1. DURAGESIC-100 [Suspect]
     Route: 062
  2. DURAGESIC-100 [Suspect]
     Route: 062
  3. DURAGESIC-100 [Suspect]
     Route: 062
  4. DURAGESIC-100 [Suspect]
     Route: 062
  5. DURAGESIC-100 [Suspect]
     Indication: CANCER PAIN
     Route: 062
  6. NAVELBINE [Concomitant]
     Indication: PROSTATE CANCER METASTATIC
  7. VICODIN [Concomitant]
     Route: 049
  8. VICODIN [Concomitant]
     Indication: CANCER PAIN
     Dosage: 10/325  - 4 IN 24 HOURS
     Route: 049

REACTIONS (2)
  - BONE MARROW DEPRESSION [None]
  - NEOPLASM PROGRESSION [None]
